FAERS Safety Report 6764532-3 (Version None)
Quarter: 2010Q2

REPORT INFORMATION
  Report Type: 
  Country: None (occurrence: None)
  Receive Date: 20100609
  Receipt Date: 20100401
  Transmission Date: 20101027
  Serious: No
  Sender: FDA-Public Use
  Company Number: 2010008189

PATIENT
  Age: 6 Year
  Sex: Female
  Weight: 18.1439 kg

DRUGS (1)
  1. CHILDREN'S ZYRTEC ALLERGY [Suspect]
     Indication: ECZEMA
     Dosage: UNSPECIFIED ORAL
     Route: 048

REACTIONS (3)
  - DECREASED APPETITE [None]
  - DISTURBANCE IN ATTENTION [None]
  - OFF LABEL USE [None]
